FAERS Safety Report 18050060 (Version 1)
Quarter: 2020Q3

REPORT INFORMATION
  Report Type: Spontaneous
  Country: US (occurrence: US)
  Receive Date: 20200721
  Receipt Date: 20200721
  Transmission Date: 20201103
  Serious: No
  Sender: FDA-Public Use
  Company Number: US-JNJFOC-20200719667

PATIENT
  Age: 60 Year
  Sex: Female
  Weight: 61.74 kg

DRUGS (7)
  1. LEVAQUIN [Suspect]
     Active Substance: LEVOFLOXACIN
     Indication: SINUSITIS
     Route: 065
  2. VITAMIN A                          /00056001/ [Suspect]
     Active Substance: RETINOL
     Indication: PRODUCT USED FOR UNKNOWN INDICATION
     Route: 065
  3. UPTRAVI [Concomitant]
     Active Substance: SELEXIPAG
     Indication: PRODUCT USED FOR UNKNOWN INDICATION
     Route: 065
  4. REVATIO [Concomitant]
     Active Substance: SILDENAFIL CITRATE
     Indication: PRODUCT USED FOR UNKNOWN INDICATION
     Route: 065
  5. XARELTO [Suspect]
     Active Substance: RIVAROXABAN
     Indication: PRODUCT USED FOR UNKNOWN INDICATION
     Route: 048
  6. BOSENTAN. [Suspect]
     Active Substance: BOSENTAN
     Indication: PULMONARY ARTERIAL HYPERTENSION
     Route: 048
     Dates: start: 20200303
  7. VITAMIN B12 [Suspect]
     Active Substance: CYANOCOBALAMIN
     Indication: PRODUCT USED FOR UNKNOWN INDICATION
     Route: 065

REACTIONS (18)
  - Gastrooesophageal reflux disease [Unknown]
  - Frequent bowel movements [Unknown]
  - Muscular weakness [Unknown]
  - Dyspnoea [Unknown]
  - Myalgia [Unknown]
  - Headache [Unknown]
  - Contusion [Unknown]
  - Abdominal discomfort [Unknown]
  - Neck pain [Unknown]
  - Secretion discharge [Unknown]
  - Pain in extremity [Unknown]
  - Cough [Unknown]
  - Chills [Unknown]
  - Heart rate increased [Unknown]
  - Back pain [Unknown]
  - Abdominal pain upper [Unknown]
  - Weight decreased [Unknown]
  - Sinusitis [Unknown]

NARRATIVE: CASE EVENT DATE: 2020
